FAERS Safety Report 20961374 (Version 2)
Quarter: 2023Q4

REPORT INFORMATION
  Report Type: Spontaneous
  Country: GB (occurrence: GB)
  Receive Date: 20220615
  Receipt Date: 20231009
  Transmission Date: 20240110
  Serious: Yes (Hospitalization, Other)
  Sender: FDA-Public Use
  Company Number: None

PATIENT
  Age: 46 Year
  Sex: Female

DRUGS (3)
  1. METHOTREXATE [Suspect]
     Active Substance: METHOTREXATE
     Indication: Behcet^s syndrome
     Dosage: UNK
     Route: 065
  2. PREDNISOLONE [Suspect]
     Active Substance: PREDNISOLONE
     Indication: Behcet^s syndrome
     Dosage: 15 MILLIGRAM
     Route: 065
  3. INFLIXIMAB [Suspect]
     Active Substance: INFLIXIMAB
     Indication: Behcet^s syndrome
     Dosage: UNK
     Route: 065

REACTIONS (5)
  - Granuloma skin [Recovered/Resolved]
  - Mycobacterium marinum infection [Recovered/Resolved]
  - Cellulitis [Recovered/Resolved]
  - Disease recurrence [Recovered/Resolved]
  - Off label use [Unknown]
